FAERS Safety Report 26187322 (Version 1)
Quarter: 2025Q4

REPORT INFORMATION
  Report Type: Report from Study
  Country: RU (occurrence: RU)
  Receive Date: 20251222
  Receipt Date: 20251222
  Transmission Date: 20260118
  Serious: Yes (Death, Life-Threatening, Hospitalization)
  Sender: PFIZER
  Company Number: RU-PFIZER INC-PV202500148782

PATIENT
  Age: 57 Year
  Sex: Female

DRUGS (2)
  1. MEDROL [Suspect]
     Active Substance: METHYLPREDNISOLONE
     Indication: Systemic lupus erythematosus
     Dosage: 12 MG, 1X/DAY
     Route: 048
     Dates: start: 20250714, end: 20251113
  2. MEDROL [Suspect]
     Active Substance: METHYLPREDNISOLONE
     Dosage: 48 MG, 1X/DAY
     Route: 048
     Dates: start: 20251024, end: 20251113

REACTIONS (1)
  - Pneumonia [Fatal]

NARRATIVE: CASE EVENT DATE: 20251111
